FAERS Safety Report 6593608-9 (Version None)
Quarter: 2010Q1

REPORT INFORMATION
  Report Type: 
  Country: None (occurrence: None)
  Receive Date: 20100222
  Receipt Date: 20090826
  Transmission Date: 20100710
  Serious: No
  Sender: FDA-Public Use
  Company Number: US-BRISTOL-MYERS SQUIBB COMPANY-14756357

PATIENT
  Age: 52 Year
  Sex: Female
  Weight: 59 kg

DRUGS (6)
  1. ORENCIA [Suspect]
     Indication: RHEUMATOID ARTHRITIS
     Dosage: 1 ST ROUND 10JUN08-03DEC08 2 ND ROUND 22JUN09
     Route: 042
     Dates: start: 20080610
  2. INSULIN [Concomitant]
  3. METHOTREXATE [Concomitant]
  4. WELLBUTRIN [Concomitant]
  5. BUSPAR [Concomitant]
  6. IBUPROFEN [Concomitant]

REACTIONS (2)
  - DYSPEPSIA [None]
  - HICCUPS [None]
